FAERS Safety Report 9406593 (Version 2)
Quarter: 2013Q3

REPORT INFORMATION
  Report Type: Spontaneous
  Country: US (occurrence: US)
  Receive Date: 20130718
  Receipt Date: 20130801
  Transmission Date: 20140515
  Serious: Yes (Other)
  Sender: FDA-Public Use
  Company Number: US-JNJFOC-20130705586

PATIENT
  Age: 68 Year
  Sex: Male
  Weight: 113.4 kg

DRUGS (8)
  1. XARELTO [Suspect]
     Indication: THROMBOSIS PROPHYLAXIS
     Route: 048
  2. XARELTO [Suspect]
     Indication: THROMBOSIS PROPHYLAXIS
     Route: 048
     Dates: start: 20130621, end: 20130706
  3. XARELTO [Suspect]
     Indication: KNEE ARTHROPLASTY
     Route: 048
     Dates: start: 20130621, end: 20130706
  4. XARELTO [Suspect]
     Indication: KNEE ARTHROPLASTY
     Route: 048
  5. CELEBREX [Suspect]
     Indication: PAIN
     Route: 048
     Dates: start: 20130624, end: 20130705
  6. LIPITOR [Concomitant]
     Indication: BLOOD CHOLESTEROL
     Route: 048
     Dates: start: 2005
  7. RAMIPRIL [Concomitant]
     Indication: BLOOD PRESSURE
     Route: 048
     Dates: start: 2000
  8. ALLOPURINOL [Concomitant]
     Indication: GOUT
     Route: 048
     Dates: start: 2000

REACTIONS (2)
  - Thrombosis [Recovered/Resolved]
  - Drug ineffective [Unknown]
